FAERS Safety Report 6385465-0 (Version None)
Quarter: 2009Q4

REPORT INFORMATION
  Report Type: 
  Country: None (occurrence: None)
  Receive Date: 20091002
  Receipt Date: 20090925
  Transmission Date: 20100525
  Serious: Yes (Other)
  Sender: FDA-Public Use
  Company Number: US-ASTRAZENECA-2007UW11096

PATIENT
  Age: 14015 Day
  Sex: Male
  Weight: 133.8 kg

DRUGS (11)
  1. SEROQUEL [Suspect]
     Indication: SCHIZOPHRENIA
     Dosage: 100 MG, 500 MG
     Route: 048
     Dates: start: 20010402
  2. SEROQUEL [Suspect]
     Route: 048
     Dates: start: 20040629, end: 20040801
  3. ZYPREXA [Concomitant]
     Indication: SCHIZOPHRENIA
     Dosage: 5 TO 10 MG
     Dates: start: 20010322, end: 20030711
  4. RISPERDAL [Concomitant]
     Indication: SCHIZOPHRENIA
     Dates: start: 20010322, end: 20070720
  5. ABILIFY [Concomitant]
     Dates: start: 20060124, end: 20061124
  6. CLOZARIL [Concomitant]
     Dates: start: 19930101, end: 19990101
  7. CLOZARIL [Concomitant]
     Dates: start: 20070101, end: 20090101
  8. GEODON [Concomitant]
     Dates: start: 20040818, end: 20050926
  9. HALDOL [Concomitant]
     Dates: start: 19850101
  10. STELAZINE [Concomitant]
     Dates: start: 19810101
  11. THORAZINE [Concomitant]
     Dates: start: 20080701, end: 20080801

REACTIONS (3)
  - ARTHROPATHY [None]
  - BLOOD CHOLESTEROL INCREASED [None]
  - TYPE 2 DIABETES MELLITUS [None]
